FAERS Safety Report 9514117 (Version 1)
Quarter: 2013Q3

REPORT INFORMATION
  Report Type: Spontaneous
  Country: US (occurrence: US)
  Receive Date: 20130910
  Receipt Date: 20130910
  Transmission Date: 20140515
  Serious: Yes (Other)
  Sender: FDA-Public Use
  Company Number: US-TEVA-431093USA

PATIENT
  Sex: Female

DRUGS (3)
  1. PLAN B ONE-STEP [Suspect]
     Indication: POST COITAL CONTRACEPTION
     Dates: start: 20130722, end: 20130722
  2. LITHIUM [Concomitant]
     Indication: BIPOLAR DISORDER
     Dosage: 1800 MILLIGRAM DAILY;
  3. VALIUM [Concomitant]
     Indication: POST-TRAUMATIC STRESS DISORDER

REACTIONS (7)
  - Pregnancy after post coital contraception [Unknown]
  - Exposure during pregnancy [Unknown]
  - Drug ineffective [Unknown]
  - Menstruation delayed [Recovered/Resolved]
  - Metrorrhagia [Recovered/Resolved]
  - Blood pressure abnormal [Not Recovered/Not Resolved]
  - Pain [Not Recovered/Not Resolved]
